FAERS Safety Report 10806526 (Version 1)
Quarter: 2015Q1

REPORT INFORMATION
  Report Type: Report from Study
  Country: US (occurrence: US)
  Receive Date: 20150217
  Receipt Date: 20150217
  Transmission Date: 20150721
  Serious: No
  Sender: FDA-Public Use
  Company Number: US-ABBVIE-14K-163-1260439-00

PATIENT
  Age: 75 Year
  Sex: Female

DRUGS (15)
  1. FOLBEE [Concomitant]
     Indication: VITAMIN B COMPLEX DEFICIENCY
     Route: 048
  2. NEXIUM [Concomitant]
     Active Substance: ESOMEPRAZOLE MAGNESIUM
     Indication: GASTROOESOPHAGEAL REFLUX DISEASE
     Route: 048
  3. HUMIRA [Suspect]
     Active Substance: ADALIMUMAB
     Indication: RHEUMATOID ARTHRITIS
     Dates: start: 201310, end: 201310
  4. HUMIRA [Suspect]
     Active Substance: ADALIMUMAB
     Dates: start: 201401, end: 2014
  5. ZOCOR [Concomitant]
     Active Substance: SIMVASTATIN
     Indication: BLOOD CHOLESTEROL INCREASED
     Route: 048
  6. HUMIRA [Suspect]
     Active Substance: ADALIMUMAB
     Dates: start: 20140709
  7. IMDUR [Concomitant]
     Active Substance: ISOSORBIDE MONONITRATE
     Indication: CARDIAC DISORDER
     Route: 048
  8. CENTRUM [Concomitant]
     Active Substance: VITAMINS
     Indication: RHEUMATOID ARTHRITIS
  9. OXYCONTIN [Suspect]
     Active Substance: OXYCODONE HYDROCHLORIDE
     Indication: PAIN
  10. FOLIC ACID. [Concomitant]
     Active Substance: FOLIC ACID
     Indication: RHEUMATOID ARTHRITIS
     Route: 048
  11. METHOTREXATE [Concomitant]
     Active Substance: METHOTREXATE
     Indication: RHEUMATOID ARTHRITIS
  12. GABAPENTIN. [Concomitant]
     Active Substance: GABAPENTIN
     Indication: RHEUMATOID ARTHRITIS
     Route: 048
  13. FORTEO [Concomitant]
     Active Substance: TERIPARATIDE
     Indication: OSTEOPOROSIS
  14. VITAMIN C [Concomitant]
     Active Substance: ASCORBIC ACID
     Indication: RHEUMATOID ARTHRITIS
  15. CALTRATE [Concomitant]
     Active Substance: CALCIUM CARBONATE
     Indication: RHEUMATOID ARTHRITIS

REACTIONS (4)
  - Adverse event [Unknown]
  - Adverse event [Unknown]
  - Epistaxis [Recovering/Resolving]
  - Dizziness [Recovering/Resolving]

NARRATIVE: CASE EVENT DATE: 201310
